FAERS Safety Report 15223289 (Version 1)
Quarter: 2018Q3

REPORT INFORMATION
  Report Type: Spontaneous
  Country: US (occurrence: US)
  Receive Date: 20180705
  Receipt Date: 20180705
  Transmission Date: 20181010
  Serious: Yes (Other)
  Sender: FDA-Public Use
  Company Number: None

PATIENT
  Age: 34 Year
  Sex: Female
  Weight: 68.04 kg

DRUGS (11)
  1. CLONAZEPAM. [Concomitant]
     Active Substance: CLONAZEPAM
  2. MARIJUANA [Concomitant]
     Active Substance: CANNABIS SATIVA SUBSP. INDICA TOP
  3. SUPER B?COMPLEX [Concomitant]
  4. VERAPAMIL [Concomitant]
     Active Substance: VERAPAMIL HYDROCHLORIDE
  5. LAMOTRIGINE. [Concomitant]
     Active Substance: LAMOTRIGINE
  6. ADDERALL [Concomitant]
     Active Substance: AMPHETAMINE ASPARTATE\AMPHETAMINE SULFATE\DEXTROAMPHETAMINE SACCHARATE\DEXTROAMPHETAMINE SULFATE
  7. MAGNESIUM [Concomitant]
     Active Substance: MAGNESIUM
  8. ESSENTIAL OILS. [Concomitant]
     Active Substance: ESSENTIAL OILS
  9. COPAXONE [Suspect]
     Active Substance: GLATIRAMER ACETATE
     Indication: PRIMARY PROGRESSIVE MULTIPLE SCLEROSIS
     Dosage: ?          QUANTITY:12 DF DOSAGE FORM;?
     Route: 058
  10. ALMOTRIPTAN. [Concomitant]
     Active Substance: ALMOTRIPTAN
  11. VITAMIN D [Concomitant]
     Active Substance: CHOLECALCIFEROL

REACTIONS (27)
  - Injection site bruising [None]
  - Injection site pain [None]
  - Pain [None]
  - Weight decreased [None]
  - Influenza like illness [None]
  - Food aversion [None]
  - Dysarthria [None]
  - Decreased appetite [None]
  - Hand deformity [None]
  - Fatigue [None]
  - Vomiting [None]
  - Aphasia [None]
  - Injection site reaction [None]
  - Injection site erythema [None]
  - Nausea [None]
  - Cognitive disorder [None]
  - Muscle spasms [None]
  - Chills [None]
  - Multiple sclerosis [None]
  - Injection site warmth [None]
  - Injection site swelling [None]
  - Speech disorder [None]
  - Alopecia [None]
  - Injection site pruritus [None]
  - Gait inability [None]
  - Dysphemia [None]
  - Anxiety [None]
